FAERS Safety Report 10480541 (Version 2)
Quarter: 2014Q3

REPORT INFORMATION
  Report Type: Spontaneous
  Country: US (occurrence: US)
  Receive Date: 20140929
  Receipt Date: 20140929
  Transmission Date: 20150326
  Serious: Yes (Other)
  Sender: FDA-Public Use
  Company Number: US-CIPLA LTD.-2014US01428

PATIENT

DRUGS (2)
  1. DOCETAXEL [Concomitant]
     Active Substance: DOCETAXEL
     Indication: SYNOVIAL SARCOMA
     Dosage: 100 MG/M2 ON DAY 8 FOR 2 CYCLES AT 28 DAYS
  2. GEMCITABINE [Suspect]
     Active Substance: GEMCITABINE\GEMCITABINE HYDROCHLORIDE
     Indication: SYNOVIAL SARCOMA
     Dosage: 900 MG/M2 ON DAYS 1 AND 8 FOR 2 CYCLES AT 21 DAYS

REACTIONS (3)
  - Recall phenomenon [Recovering/Resolving]
  - Myositis [Recovering/Resolving]
  - Compartment syndrome [Unknown]
